FAERS Safety Report 17224993 (Version 1)
Quarter: 2020Q1

REPORT INFORMATION
  Report Type: Spontaneous
  Country: US (occurrence: US)
  Receive Date: 20200101
  Receipt Date: 20200101
  Transmission Date: 20200409
  Serious: Yes (Other)
  Sender: FDA-Public Use
  Company Number: None

PATIENT
  Age: 52 Year
  Sex: Female
  Weight: 63 kg

DRUGS (6)
  1. NS 500ML [Concomitant]
     Dates: start: 20191218, end: 20191220
  2. LEMTRADA [Suspect]
     Active Substance: ALEMTUZUMAB
     Indication: MULTIPLE SCLEROSIS
     Dosage: ?          OTHER FREQUENCY:AS ORDERED;?
     Route: 042
     Dates: start: 20191218, end: 20191220
  3. SOLU-MEDROL [Concomitant]
     Active Substance: METHYLPREDNISOLONE SODIUM SUCCINATE
     Dates: start: 20191218, end: 20191220
  4. BENADRYL 50MG [Concomitant]
     Dates: start: 20191218, end: 20191220
  5. TYLENOL 1000MG [Concomitant]
     Dates: start: 20191218, end: 20191220
  6. FAMOTIDINE 20MG [Concomitant]
     Active Substance: FAMOTIDINE
     Dates: start: 20191218, end: 20191220

REACTIONS (4)
  - Headache [None]
  - Nausea [None]
  - Blood pressure increased [None]
  - Malaise [None]

NARRATIVE: CASE EVENT DATE: 20191220
